FAERS Safety Report 7281019-2 (Version None)
Quarter: 2011Q1

REPORT INFORMATION
  Report Type: 
  Country: None (occurrence: None)
  Receive Date: 20110208
  Receipt Date: 20110131
  Transmission Date: 20110831
  Serious: Yes (Death)
  Sender: FDA-Public Use
  Company Number: CHPA2011US01829

PATIENT
  Age: 34 Year
  Sex: Female

DRUGS (8)
  1. LORAZEPAM [Suspect]
  2. METOPROLOL TARTRATE AND HYDROCHLOROTHIAZIDE [Suspect]
  3. ZOLPIDEM [Suspect]
  4. AMPHETAMINE [Suspect]
  5. ACETAMINOPHEN (PARACETAMOL),DIPHENHYDRAMINE HYDROCHLORIDE [Suspect]
  6. BENZODIAZEPINES [Suspect]
  7. SODIUM BICARBONATE [Suspect]
  8. FLUOXETINE HYDROCHLORIDE [Suspect]

REACTIONS (1)
  - COMPLETED SUICIDE [None]
